FAERS Safety Report 23442459 (Version 1)
Quarter: 2024Q1

REPORT INFORMATION
  Report Type: Spontaneous
  Country: JP (occurrence: JP)
  Receive Date: 20240125
  Receipt Date: 20240125
  Transmission Date: 20240410
  Serious: Yes (Other)
  Sender: FDA-Public Use
  Company Number: JP-002147023-NVSJ2024JP001210

PATIENT

DRUGS (1)
  1. AFINITOR [Suspect]
     Active Substance: EVEROLIMUS
     Indication: Carcinoid tumour
     Dosage: UNK
     Route: 048

REACTIONS (4)
  - Carcinoid tumour [Unknown]
  - Malignant neoplasm progression [Unknown]
  - Pericarditis [Unknown]
  - Pleural effusion [Unknown]
